FAERS Safety Report 5757276-8 (Version None)
Quarter: 2008Q2

REPORT INFORMATION
  Report Type: 
  Country: None (occurrence: None)
  Receive Date: 20080603
  Receipt Date: 20080530
  Transmission Date: 20081010
  Serious: Yes (Hospitalization)
  Sender: FDA-Public Use
  Company Number: DE-BRISTOL-MYERS SQUIBB COMPANY-14204382

PATIENT
  Age: 52 Year
  Sex: Male
  Weight: 98 kg

DRUGS (3)
  1. ABILIFY [Suspect]
     Indication: SCHIZOPHRENIA, PARANOID TYPE
     Route: 048
     Dates: start: 20070503, end: 20080117
  2. LORAZEPAM [Concomitant]
  3. AMISULPRIDUM [Concomitant]
     Dosage: DOSE REDUCED TO 400MG, THEN 300 MG AND THEN STOPPED.

REACTIONS (1)
  - PSYCHOTIC DISORDER [None]
